FAERS Safety Report 11283287 (Version 1)
Quarter: 2015Q3

REPORT INFORMATION
  Report Type: Spontaneous
  Country: IT (occurrence: IT)
  Receive Date: 20150720
  Receipt Date: 20150720
  Transmission Date: 20151125
  Serious: Yes (Other)
  Sender: FDA-Public Use
  Company Number: IT-GLAXOSMITHKLINE-IT2015GSK103340

PATIENT
  Sex: Female

DRUGS (1)
  1. CYCLOVIRAN [Suspect]
     Active Substance: ACYCLOVIR
     Indication: OPHTHALMIC HERPES SIMPLEX
     Dosage: 800 MG, QD
     Route: 048
     Dates: start: 20150407

REACTIONS (3)
  - Abdominal pain [Recovered/Resolved]
  - Dermatitis bullous [Recovered/Resolved]
  - Abdominal distension [Recovered/Resolved]

NARRATIVE: CASE EVENT DATE: 20150414
